FAERS Safety Report 7102715-3 (Version None)
Quarter: 2010Q4

REPORT INFORMATION
  Report Type: 
  Country: None (occurrence: None)
  Receive Date: 20101115
  Receipt Date: 20101102
  Transmission Date: 20110411
  Serious: Yes (Hospitalization)
  Sender: FDA-Public Use
  Company Number: PHFR2010GB04688

PATIENT
  Sex: Male

DRUGS (6)
  1. CLOZARIL [Suspect]
     Indication: SCHIZOPHRENIA
     Dosage: 250 MG, BID
     Route: 048
     Dates: start: 20100429
  2. CLOZARIL [Suspect]
     Dosage: 19 X 100 MG CLOZARIL TABLETS (1900 MG)
     Route: 048
     Dates: start: 20101008
  3. LITHIUM [Suspect]
     Dosage: UNK
     Dates: start: 20101008
  4. MIRTAZAPINE [Suspect]
     Dosage: UNK
     Dates: start: 20101008
  5. TRUVADA [Concomitant]
     Dosage: UNK
     Route: 065
     Dates: start: 20100101
  6. KALETRA [Concomitant]
     Dosage: UNK
     Route: 065
     Dates: start: 20100101

REACTIONS (3)
  - MULTIPLE DRUG OVERDOSE [None]
  - OFF LABEL USE [None]
  - OVERDOSE [None]
